FAERS Safety Report 25330923 (Version 1)
Quarter: 2025Q2

REPORT INFORMATION
  Report Type: Spontaneous
  Country: US (occurrence: US)
  Receive Date: 20250519
  Receipt Date: 20250519
  Transmission Date: 20250716
  Serious: No
  Sender: TEVA
  Company Number: US-TEVA-VS-3328998

PATIENT
  Age: 41 Year
  Sex: Male

DRUGS (2)
  1. ADDERALL [Suspect]
     Active Substance: AMPHETAMINE ASPARTATE\AMPHETAMINE SULFATE\DEXTROAMPHETAMINE SACCHARATE\DEXTROAMPHETAMINE SULFATE
     Indication: Attention deficit hyperactivity disorder
     Route: 065
     Dates: start: 2023, end: 2023
  2. ADDERALL [Suspect]
     Active Substance: AMPHETAMINE ASPARTATE\AMPHETAMINE SULFATE\DEXTROAMPHETAMINE SACCHARATE\DEXTROAMPHETAMINE SULFATE
     Indication: Attention deficit hyperactivity disorder
     Dosage: TEVA 20 MG IR ADDERALL
     Route: 065
     Dates: start: 2023

REACTIONS (5)
  - Confusional state [Unknown]
  - Brain fog [Unknown]
  - Depression [Unknown]
  - Drug ineffective [Unknown]
  - Memory impairment [Unknown]

NARRATIVE: CASE EVENT DATE: 20250101
